FAERS Safety Report 4795368-0 (Version None)
Quarter: 2005Q4

REPORT INFORMATION
  Report Type: 
  Country: None (occurrence: None)
  Receive Date: 20051007
  Receipt Date: 20051007
  Transmission Date: 20060501
  Serious: Yes (Hospitalization)
  Sender: FDA-Public Use
  Company Number: None

PATIENT
  Age: 84 Year
  Sex: Male

DRUGS (3)
  1. WARFARIN [Suspect]
     Indication: ATRIAL FIBRILLATION
     Dosage: 2MG QD PO
     Route: 048
  2. NAPROSYN [Suspect]
     Indication: ARTHRALGIA
     Dosage: 500MG BID PO
     Route: 048
  3. NAPROSYN [Suspect]
     Indication: KNEE ARTHROPLASTY
     Dosage: 500MG BID PO
     Route: 048

REACTIONS (3)
  - GASTROINTESTINAL HAEMORRHAGE [None]
  - HAEMOGLOBIN DECREASED [None]
  - INTERNATIONAL NORMALISED RATIO INCREASED [None]
